FAERS Safety Report 4834566-4 (Version None)
Quarter: 2005Q4

REPORT INFORMATION
  Report Type: 
  Country: None (occurrence: None)
  Receive Date: 20051122
  Receipt Date: 20050331
  Transmission Date: 20060501
  Serious: No
  Sender: FDA-Public Use
  Company Number: US-BRISTOL-MYERS SQUIBB COMPANY-12916821

PATIENT
  Age: 72 Year
  Sex: Female
  Weight: 60 kg

DRUGS (3)
  1. PRAVACHOL [Suspect]
     Indication: BLOOD CHOLESTEROL
     Route: 048
  2. PRINIVIL [Concomitant]
  3. PREMARIN [Concomitant]
     Route: 067

REACTIONS (2)
  - ASTHENIA [None]
  - PARAESTHESIA [None]
